FAERS Safety Report 4292276-9 (Version None)
Quarter: 2004Q1

REPORT INFORMATION
  Report Type: 
  Country: None (occurrence: None)
  Receive Date: 20040211
  Receipt Date: 20021022
  Transmission Date: 20041129
  Serious: Yes (Hospitalization)
  Sender: FDA-Public Use
  Company Number: AU-ROCHE-323925

PATIENT
  Age: 42 Year
  Sex: Male
  Weight: 40.8 kg

DRUGS (11)
  1. MYCOPHENOLATE MOFETIL [Suspect]
     Route: 048
     Dates: start: 20021006, end: 20021030
  2. MYCOPHENOLATE MOFETIL [Suspect]
     Route: 048
     Dates: start: 20021031, end: 20021031
  3. MYCOPHENOLATE MOFETIL [Suspect]
     Route: 065
     Dates: start: 20021102, end: 20030216
  4. NEORAL [Suspect]
     Route: 065
     Dates: start: 20021015, end: 20021021
  5. NEORAL [Suspect]
     Route: 065
     Dates: start: 20021022, end: 20021031
  6. PREDNISONE [Concomitant]
     Dates: start: 20021008, end: 20021031
  7. TACROLIMUS [Concomitant]
     Dates: start: 20021101
  8. BACTRIM [Concomitant]
  9. ESOMEPRAZOLE [Concomitant]
  10. VALACYCLOVIR HCL [Concomitant]
  11. CALCITRIOL [Concomitant]

REACTIONS (5)
  - GRAFT DYSFUNCTION [None]
  - HYDRONEPHROSIS [None]
  - RENAL IMPAIRMENT [None]
  - WOUND DEHISCENCE [None]
  - WOUND INFECTION [None]
